FAERS Safety Report 23934611 (Version 2)
Quarter: 2024Q3

REPORT INFORMATION
  Report Type: Spontaneous
  Country: JP (occurrence: JP)
  Receive Date: 20240603
  Receipt Date: 20240712
  Transmission Date: 20241017
  Serious: Yes (Other)
  Sender: MALLINCKRODT
  Company Number: JP-MALLINCKRODT-MNK202403568

PATIENT
  Age: 45 Year
  Sex: Male

DRUGS (5)
  1. NITRIC OXIDE [Suspect]
     Active Substance: NITRIC OXIDE
     Indication: Pulmonary hypertension
     Dosage: 20 PPM
     Route: 055
  2. NITRIC OXIDE [Suspect]
     Active Substance: NITRIC OXIDE
     Dosage: 10 PPM
     Route: 055
  3. NITRIC OXIDE [Suspect]
     Active Substance: NITRIC OXIDE
     Dosage: 0 PPM
     Route: 055
  4. NITRIC OXIDE [Suspect]
     Active Substance: NITRIC OXIDE
     Dosage: 20 PPM (READMINISTRATION)
     Route: 055
  5. NITROGLYCERIN [Concomitant]
     Active Substance: NITROGLYCERIN
     Dosage: UNKNOWN

REACTIONS (5)
  - Pulmonary hypertension [Recovered/Resolved]
  - Pulmonary vascular resistance abnormality [Unknown]
  - Cyanosis [Recovering/Resolving]
  - Venous oxygen saturation decreased [Recovered/Resolved]
  - Lung diffusion test decreased [Recovered/Resolved]
